FAERS Safety Report 8368841-6 (Version None)
Quarter: 2012Q2

REPORT INFORMATION
  Report Type: 
  Country: None (occurrence: None)
  Receive Date: 20120516
  Receipt Date: 20120430
  Transmission Date: 20120825
  Serious: Yes (Hospitalization, Other)
  Sender: FDA-Public Use
  Company Number: JPI-P-021024

PATIENT
  Age: 50 Year
  Sex: Female
  Weight: 84.8226 kg

DRUGS (10)
  1. ROPINIROLE HYDROCHLORIDE [Suspect]
     Indication: RESTLESS LEGS SYNDROME
     Dosage: 4 MG (4 MG, 1 IN 1 D)
     Dates: end: 20120101
  2. ROPINIROLE HYDROCHLORIDE [Suspect]
     Indication: RESTLESS LEGS SYNDROME
     Dosage: 4 MG (4 MG, 1 IN 1 D)
     Dates: start: 20120101
  3. DULOXETINE HYDROCHLORIDE [Concomitant]
  4. XYREM [Suspect]
     Indication: CATAPLEXY
     Dosage: 4.5 GM (2.25 GM, 2 IN 1 D), ORAL 9 GM (4.5 GM, 2 IN 1 D), ORAL 9.5 GM (4.75 GM, 2 IN 1 D), ORAL
     Route: 048
     Dates: start: 20110310, end: 20120101
  5. XYREM [Suspect]
     Indication: CATAPLEXY
     Dosage: 4.5 GM (2.25 GM, 2 IN 1 D), ORAL 9 GM (4.5 GM, 2 IN 1 D), ORAL 9.5 GM (4.75 GM, 2 IN 1 D), ORAL
     Route: 048
     Dates: start: 20111013
  6. ARMODAFINIL [Suspect]
     Indication: NARCOLEPSY
     Dosage: 150 MG (150 MG, 1 IN 1 D)
     Dates: end: 20120101
  7. ARMODAFINIL [Suspect]
     Indication: SOMNOLENCE
     Dosage: 150 MG (150 MG, 1 IN 1 D)
     Dates: end: 20120101
  8. ARMODAFINIL [Suspect]
     Indication: NARCOLEPSY
     Dosage: 150 MG (150 MG, 1 IN 1 D)
     Dates: start: 20120101
  9. ARMODAFINIL [Suspect]
     Indication: SOMNOLENCE
     Dosage: 150 MG (150 MG, 1 IN 1 D)
     Dates: start: 20120101
  10. GABAPENTIN ENACARBIL [Concomitant]

REACTIONS (12)
  - ABDOMINAL PAIN [None]
  - DYSKINESIA [None]
  - BACK PAIN [None]
  - MUSCLE SPASMS [None]
  - ARTHRALGIA [None]
  - IMPAIRED GASTRIC EMPTYING [None]
  - INAPPROPRIATE AFFECT [None]
  - MIDDLE INSOMNIA [None]
  - HIATUS HERNIA [None]
  - NAUSEA [None]
  - RETCHING [None]
  - INCREASED APPETITE [None]
